FAERS Safety Report 18284261 (Version 14)
Quarter: 2022Q4

REPORT INFORMATION
  Report Type: Report from Study
  Country: FR (occurrence: None)
  Receive Date: 20200918
  Receipt Date: 20221115
  Transmission Date: 20230112
  Serious: Yes (Hospitalization)
  Sender: FDA-Public Use
  Company Number: FR-EISAI MEDICAL RESEARCH-EC-2020-080764

PATIENT
  Age: 78 Year
  Sex: Male
  Weight: 79 kg

DRUGS (14)
  1. LENVATINIB [Suspect]
     Active Substance: LENVATINIB
     Indication: Malignant melanoma
     Route: 048
     Dates: start: 20200907, end: 20200916
  2. LENVATINIB [Suspect]
     Active Substance: LENVATINIB
     Route: 048
     Dates: start: 20200921, end: 20210221
  3. LENVATINIB [Suspect]
     Active Substance: LENVATINIB
     Route: 048
     Dates: start: 20210227, end: 20210510
  4. PEMBROLIZUMAB [Suspect]
     Active Substance: PEMBROLIZUMAB
     Indication: Malignant melanoma
     Route: 041
     Dates: start: 20200907, end: 20200907
  5. PEMBROLIZUMAB [Suspect]
     Active Substance: PEMBROLIZUMAB
     Route: 041
     Dates: start: 20201019, end: 20210408
  6. QUAVONLIMAB [Suspect]
     Active Substance: QUAVONLIMAB
     Indication: Malignant melanoma
     Route: 041
     Dates: start: 20200907, end: 20200907
  7. QUAVONLIMAB [Suspect]
     Active Substance: QUAVONLIMAB
     Route: 041
     Dates: start: 20201019, end: 20210408
  8. METFORMIN [Concomitant]
     Active Substance: METFORMIN HYDROCHLORIDE
     Dates: start: 202003
  9. GLICLAZIDE [Concomitant]
     Active Substance: GLICLAZIDE
     Dates: start: 202003
  10. TAMSULOSIN HYDROCHLORIDE [Concomitant]
     Active Substance: TAMSULOSIN HYDROCHLORIDE
     Dates: start: 202003
  11. ESOMEPRAZOLE [Concomitant]
     Active Substance: ESOMEPRAZOLE
     Dates: start: 202003
  12. TAHOR [Concomitant]
     Active Substance: ATORVASTATIN CALCIUM
     Dates: start: 202003
  13. KARDEGIC [Concomitant]
     Active Substance: ASPIRIN DL-LYSINE
     Dates: start: 202003
  14. BISOPROLOL FUMARATE\HYDROCHLOROTHIAZIDE [Concomitant]
     Active Substance: BISOPROLOL FUMARATE\HYDROCHLOROTHIAZIDE
     Dates: start: 202003

REACTIONS (1)
  - Pancreatitis [Recovered/Resolved]

NARRATIVE: CASE EVENT DATE: 20200911
